FAERS Safety Report 9397307 (Version 4)
Quarter: 2013Q4

REPORT INFORMATION
  Report Type: Spontaneous
  Country: JP (occurrence: JP)
  Receive Date: 20130712
  Receipt Date: 20131205
  Transmission Date: 20140711
  Serious: Yes (Death, Other)
  Sender: FDA-Public Use
  Company Number: JP-SANOFI-AVENTIS-2013SA069046

PATIENT
  Age: 74 Year
  Sex: Male
  Weight: 51.8 kg

DRUGS (9)
  1. ONETAXOTERE [Suspect]
     Indication: SQUAMOUS CELL CARCINOMA OF LUNG
     Dosage: 60MG/M2 (93 MG/BODY)
     Route: 042
     Dates: start: 20130627, end: 20130627
  2. ONETAXOTERE [Suspect]
     Indication: SQUAMOUS CELL CARCINOMA OF LUNG
     Dosage: 60MG/M2 (93 MG/BODY)
     Route: 042
     Dates: start: 20130627, end: 20130627
  3. KYTRIL [Concomitant]
     Indication: PROPHYLAXIS OF NAUSEA AND VOMITING
     Route: 042
     Dates: start: 20130627, end: 20130627
  4. DEXART [Concomitant]
     Indication: PROPHYLAXIS OF NAUSEA AND VOMITING
     Route: 042
     Dates: start: 20130627, end: 20130627
  5. PREDNISOLONE [Concomitant]
     Indication: RHEUMATOID ARTHRITIS
     Route: 048
     Dates: start: 20120913, end: 20130703
  6. GASTER D [Concomitant]
     Indication: ANTACID THERAPY
     Route: 048
     Dates: end: 20130703
  7. NAIXAN [Concomitant]
     Indication: RHEUMATOID ARTHRITIS
     Route: 048
     Dates: end: 20130703
  8. NOVORAPID [Concomitant]
     Indication: DIABETES MELLITUS
     Dosage: DOSE: 2-4 UNITS
     Route: 058
     Dates: start: 20130628, end: 20130703
  9. LANTUS [Concomitant]
     Indication: DIABETES MELLITUS
     Dosage: DOSE:2 UNIT(S)
     Route: 058
     Dates: start: 20130628, end: 20130703

REACTIONS (9)
  - Haemoptysis [Fatal]
  - Shock haemorrhagic [Fatal]
  - Neutropenia [Fatal]
  - Sepsis [Fatal]
  - Septic embolus [Unknown]
  - Infected varicose vein [Unknown]
  - Constipation [Unknown]
  - Nausea [Unknown]
  - Decreased appetite [Unknown]
